FAERS Safety Report 5125803-X (Version None)
Quarter: 2006Q4

REPORT INFORMATION
  Report Type: 
  Country: None (occurrence: None)
  Receive Date: 20061012
  Receipt Date: 20060830
  Transmission Date: 20070319
  Serious: Yes (Hospitalization)
  Sender: FDA-Public Use
  Company Number: HQWYE183631AUG06

PATIENT
  Sex: Female
  Weight: 43 kg

DRUGS (8)
  1. ENBREL [Suspect]
     Indication: RHEUMATOID ARTHRITIS
     Route: 058
     Dates: start: 20051129, end: 20060706
  2. METOLATE [Suspect]
     Indication: RHEUMATOID ARTHRITIS
     Route: 048
  3. MOBIC [Concomitant]
     Indication: RHEUMATOID ARTHRITIS
     Route: 048
  4. BLOPRESS [Concomitant]
     Indication: HYPERTENSION
     Route: 048
     Dates: start: 20060307
  5. PARIET [Concomitant]
     Indication: PROPHYLAXIS AGAINST GASTROINTESTINAL ULCER
     Route: 048
  6. MAGNESIUM OXIDE [Concomitant]
     Indication: CONSTIPATION
     Route: 048
     Dates: start: 20060123
  7. ASPIRIN [Concomitant]
     Indication: THROMBOSIS PROPHYLAXIS
     Route: 048
     Dates: start: 20060117
  8. NORVASC [Concomitant]
     Indication: HYPERTENSION
     Route: 048
     Dates: start: 20051111, end: 20060307

REACTIONS (8)
  - CONDITION AGGRAVATED [None]
  - ECZEMA [None]
  - HAEMORRHAGE SUBCUTANEOUS [None]
  - OEDEMA PERIPHERAL [None]
  - RETINAL HAEMORRHAGE [None]
  - RETINOPATHY HYPERTENSIVE [None]
  - THROMBOPHLEBITIS [None]
  - WEIGHT INCREASED [None]
